FAERS Safety Report 16524756 (Version 3)
Quarter: 2019Q3

REPORT INFORMATION
  Report Type: Spontaneous
  Country: US (occurrence: US)
  Receive Date: 20190703
  Receipt Date: 20190923
  Transmission Date: 20191004
  Serious: No
  Sender: FDA-Public Use
  Company Number: US-ASTRAZENECA-2019SE86456

PATIENT
  Sex: Female

DRUGS (2)
  1. PULMICORT FLEXHALER [Suspect]
     Active Substance: BUDESONIDE
     Indication: ASTHMA
     Route: 055
     Dates: start: 201404
  2. ASMANEX [Concomitant]
     Active Substance: MOMETASONE FUROATE
     Route: 055

REACTIONS (3)
  - Device malfunction [Unknown]
  - Wrong technique in device usage process [Unknown]
  - Amnesia [Unknown]
